FAERS Safety Report 16001983 (Version 1)
Quarter: 2019Q1

REPORT INFORMATION
  Report Type: Spontaneous
  Country: US (occurrence: US)
  Receive Date: 20190225
  Receipt Date: 20190225
  Transmission Date: 20190418
  Serious: No
  Sender: FDA-Public Use
  Company Number: US-PFIZER INC-2016502026

PATIENT
  Age: 47 Year
  Sex: Male
  Weight: 77 kg

DRUGS (3)
  1. LYRICA [Suspect]
     Active Substance: PREGABALIN
     Indication: CROHN^S DISEASE
  2. LYRICA [Suspect]
     Active Substance: PREGABALIN
     Indication: SHORT-BOWEL SYNDROME
  3. LYRICA [Suspect]
     Active Substance: PREGABALIN
     Indication: NEURALGIA
     Dosage: 100 MG, 2X/DAY

REACTIONS (5)
  - Nausea [Unknown]
  - Headache [Unknown]
  - Memory impairment [Unknown]
  - Product use in unapproved indication [Unknown]
  - Decreased appetite [Unknown]
